FAERS Safety Report 8319902-9 (Version None)
Quarter: 2012Q2

REPORT INFORMATION
  Report Type: 
  Country: None (occurrence: None)
  Receive Date: 20120427
  Receipt Date: 20120424
  Transmission Date: 20120825
  Serious: Yes (Hospitalization)
  Sender: FDA-Public Use
  Company Number: US-FRI-1000030045

PATIENT
  Age: 34 Year
  Sex: Female

DRUGS (6)
  1. CLONAZEPAM [Concomitant]
     Indication: ANXIETY
  2. VIIBRYD [Suspect]
     Indication: DEPRESSION
     Dosage: 10 MG
     Route: 048
     Dates: start: 20120329, end: 20120404
  3. VIIBRYD [Suspect]
     Dosage: 20 MG
     Route: 048
     Dates: start: 20120405, end: 20120401
  4. SEROQUEL [Concomitant]
     Indication: AFFECTIVE DISORDER
  5. SEROQUEL [Concomitant]
     Indication: ANXIETY
  6. SEROQUEL [Concomitant]
     Indication: INSOMNIA

REACTIONS (3)
  - LIVER FUNCTION TEST ABNORMAL [None]
  - MALAISE [None]
  - PANIC ATTACK [None]
